FAERS Safety Report 10559537 (Version 13)
Quarter: 2016Q4

REPORT INFORMATION
  Report Type: Report from Study
  Country: CA (occurrence: CA)
  Receive Date: 20141103
  Receipt Date: 20161107
  Transmission Date: 20170206
  Serious: Yes (Death, Hospitalization)
  Sender: FDA-Public Use
  Company Number: PHHY2013CA109137

PATIENT
  Age: 76 Year
  Sex: Female

DRUGS (4)
  1. SANDOSTATIN LAR DEPOT [Suspect]
     Active Substance: OCTREOTIDE ACETATE
     Dosage: 20 MG, QMO (EVERY 4 WEEKS)
     Route: 030
     Dates: start: 20141028
  2. SANDOSTATIN LAR DEPOT [Suspect]
     Active Substance: OCTREOTIDE ACETATE
     Indication: NEUROENDOCRINE TUMOUR
     Dosage: 20 MG, QMO (ONCE A MONTH)
     Route: 030
     Dates: start: 20120628, end: 20130821
  3. SANDOSTATIN LAR DEPOT [Suspect]
     Active Substance: OCTREOTIDE ACETATE
     Dosage: 20 MG, QMO (EVERY 4 WEEKS)
     Route: 030
     Dates: start: 20130923, end: 20160923
  4. SANDOSTATIN LAR DEPOT [Suspect]
     Active Substance: OCTREOTIDE ACETATE
     Dosage: 20 MG, QMO (ONCE A MONTH)
     Route: 030
     Dates: start: 20131030, end: 20140930

REACTIONS (31)
  - Spinal pain [Unknown]
  - Gait disturbance [Unknown]
  - Hyperphagia [Unknown]
  - Spinal cord compression [Unknown]
  - Blood pressure systolic increased [Unknown]
  - Blood pressure diastolic decreased [Unknown]
  - Mood altered [Unknown]
  - Somnolence [Unknown]
  - Body temperature decreased [Unknown]
  - Hypotension [Unknown]
  - Fall [Unknown]
  - Movement disorder [Unknown]
  - Spinal osteoarthritis [Unknown]
  - Vomiting [Recovering/Resolving]
  - Blood glucose increased [Unknown]
  - Asthenia [Unknown]
  - Diarrhoea [Recovering/Resolving]
  - Dizziness [Unknown]
  - Nausea [Recovered/Resolved]
  - Malaise [Recovering/Resolving]
  - Hyperglycaemia [Unknown]
  - Wrong technique in product usage process [Unknown]
  - Weight decreased [Unknown]
  - Mobility decreased [Unknown]
  - Hip fracture [Unknown]
  - Dehydration [Unknown]
  - Arthralgia [Unknown]
  - Fatigue [Recovered/Resolved]
  - Hypoglycaemia [Unknown]
  - Death [Fatal]
  - Confusional state [Unknown]

NARRATIVE: CASE EVENT DATE: 20140120
